FAERS Safety Report 9354487 (Version 1)
Quarter: 2013Q2

REPORT INFORMATION
  Report Type: Spontaneous
  Country: CN (occurrence: CN)
  Receive Date: 20130618
  Receipt Date: 20130618
  Transmission Date: 20140414
  Serious: Yes (Other)
  Sender: FDA-Public Use
  Company Number: CN-ASTRAZENECA-2013SE43112

PATIENT
  Age: 68 Year
  Sex: Male

DRUGS (1)
  1. PLENDIL [Suspect]
     Indication: HYPERTENSION
     Route: 048

REACTIONS (2)
  - Chills [Recovering/Resolving]
  - Fatigue [Recovering/Resolving]
